FAERS Safety Report 12040283 (Version 1)
Quarter: 2016Q1

REPORT INFORMATION
  Report Type: Spontaneous
  Country: JP (occurrence: JP)
  Receive Date: 20160208
  Receipt Date: 20160208
  Transmission Date: 20160526
  Serious: Yes (Hospitalization, Other)
  Sender: FDA-Public Use
  Company Number: JP-GLAXOSMITHKLINE-JP2016JPN015095

PATIENT
  Age: 47 Year
  Sex: Female

DRUGS (6)
  1. LAMICTAL [Suspect]
     Active Substance: LAMOTRIGINE
     Indication: BIPOLAR DISORDER
     Dosage: 25 MG, QD
     Route: 048
     Dates: start: 20151214, end: 20160125
  2. BENZALIN (JAPAN) [Concomitant]
     Dosage: 10 MG, BID
  3. DEPAS [Concomitant]
     Active Substance: ETIZOLAM
     Dosage: 0.5 MG, PRN
  4. ACINON [Concomitant]
     Active Substance: NIZATIDINE
     Dosage: 150 MG, BID
  5. PURSENNID [Concomitant]
     Active Substance: SENNOSIDES A AND B
     Dosage: UNK
  6. MAGLAX [Concomitant]
     Active Substance: MAGNESIUM OXIDE
     Dosage: UNK

REACTIONS (7)
  - Tenderness [Unknown]
  - Erythema [Not Recovered/Not Resolved]
  - Pancytopenia [Recovered/Resolved]
  - Erythema multiforme [Not Recovered/Not Resolved]
  - Lymphadenopathy [Recovering/Resolving]
  - Rash [Unknown]
  - Pyrexia [Unknown]

NARRATIVE: CASE EVENT DATE: 20160109
